FAERS Safety Report 6327625-0 (Version None)
Quarter: 2009Q3

REPORT INFORMATION
  Report Type: 
  Country: None (occurrence: None)
  Receive Date: 20090825
  Receipt Date: 20090813
  Transmission Date: 20100115
  Serious: Yes (Hospitalization)
  Sender: FDA-Public Use
  Company Number: FR-ELI_LILLY_AND_COMPANY-FR200907003312

PATIENT
  Sex: Female

DRUGS (13)
  1. FORTEO [Suspect]
     Indication: OSTEOPOROSIS
     Dosage: 20 UG, DAILY (1/D)
     Route: 058
     Dates: start: 20090704
  2. ATHYMIL [Concomitant]
     Dosage: 30 MG, DAILY (1/D)
     Route: 048
  3. LEXOMIL [Concomitant]
     Dosage: 0.75 D/F, DAILY (1/D)
     Route: 048
  4. MOPRAL [Concomitant]
     Dosage: 20 MG, DAILY (1/D)
     Route: 048
  5. CORTANCYL [Concomitant]
     Indication: RHEUMATOID ARTHRITIS
     Dosage: 1 MG, 4/D
     Route: 048
  6. NOVATREX [Concomitant]
     Dosage: 2.5 MG, 4/D
     Route: 048
  7. ZOPICLONE [Concomitant]
     Dosage: 2 D/F, DAILY (1/D)
     Route: 048
  8. VOLTAREN [Concomitant]
     Dosage: 3 D/F, DAILY (1/D)
     Route: 061
  9. CALCIDOSE [Concomitant]
     Dosage: 1 BAG, TWICE DAILY
     Route: 048
  10. CARTREX [Concomitant]
     Dosage: 100 MG, DAILY (1/D)
     Route: 048
  11. DAFALGAN CODEINE [Concomitant]
     Dosage: 1 D/F, 3/D
     Route: 048
  12. ALDACTAZINE [Concomitant]
     Dosage: 1 D/F, DAILY (1/D)
     Route: 048
  13. CETAVLON [Concomitant]
     Dosage: UNK, UNKNOWN
     Route: 061

REACTIONS (3)
  - DIABETES MELLITUS INADEQUATE CONTROL [None]
  - HYPOGLYCAEMIC COMA [None]
  - TRANSAMINASES INCREASED [None]
